FAERS Safety Report 8449346-0 (Version None)
Quarter: 2012Q2

REPORT INFORMATION
  Report Type: 
  Country: None (occurrence: None)
  Receive Date: 20120619
  Receipt Date: 20120615
  Transmission Date: 20120825
  Serious: Yes (Other)
  Sender: FDA-Public Use
  Company Number: US-PFIZER INC-2012114231

PATIENT
  Sex: Male
  Weight: 68 kg

DRUGS (4)
  1. GENOTROPIN [Suspect]
     Indication: SMALL FOR DATES BABY
  2. CLARITIN [Concomitant]
     Indication: CHRONIC SINUSITIS
     Dosage: 10 MG, 1X/DAY
  3. GENOTROPIN [Suspect]
     Indication: GROWTH HORMONE DEFICIENCY
     Dosage: 3.6 MG, 1X/DAY
     Route: 058
     Dates: start: 20071024
  4. GENOTROPIN [Suspect]
     Indication: HYPOPITUITARISM

REACTIONS (1)
  - INFECTIOUS MONONUCLEOSIS [None]
